FAERS Safety Report 4389135-X (Version None)
Quarter: 2004Q3

REPORT INFORMATION
  Report Type: 
  Country: None (occurrence: None)
  Receive Date: 20040702
  Receipt Date: 20030722
  Transmission Date: 20050211
  Serious: No
  Sender: FDA-Public Use
  Company Number: US-GLAXOSMITHKLINE-A0418662A

PATIENT
  Age: 53 Year
  Sex: Female

DRUGS (3)
  1. PARNATE [Suspect]
     Indication: DEPRESSION
     Dosage: 10MG TWICE PER DAY
     Route: 048
  2. ATIVAN [Suspect]
     Indication: SLEEP DISORDER
     Dosage: .5MG AS REQUIRED
     Route: 048
  3. ZANTAC [Concomitant]
     Indication: GASTRIC DISORDER
     Route: 065

REACTIONS (2)
  - DEPRESSION [None]
  - MUSCULOSKELETAL STIFFNESS [None]
